FAERS Safety Report 5564914-1 (Version None)
Quarter: 2007Q4

REPORT INFORMATION
  Report Type: 
  Country: None (occurrence: None)
  Receive Date: 20071218
  Receipt Date: 20071211
  Transmission Date: 20080405
  Serious: Yes (Hospitalization, Congenital Anomaly)
  Sender: FDA-Public Use
  Company Number: A0656856A

PATIENT
  Sex: Male
  Weight: 3.2 kg

DRUGS (9)
  1. PAXIL [Suspect]
     Indication: ANXIETY
     Dates: start: 19981111, end: 20000901
  2. CLARITIN-D [Concomitant]
  3. KAOPECTATE [Concomitant]
  4. SUDAFED 12 HOUR [Concomitant]
     Dates: start: 20000301
  5. VICK VAPORUB [Concomitant]
     Dates: start: 20000301
  6. REGLAN [Concomitant]
     Indication: NAUSEA
     Dates: start: 19991101
  7. PRENATAL VITAMINS [Concomitant]
  8. FLONASE [Concomitant]
     Route: 045
     Dates: end: 19991001
  9. AMOXICILLIN [Concomitant]
     Dosage: 500MG THREE TIMES PER DAY
     Dates: start: 20000303

REACTIONS (32)
  - APNOEA [None]
  - ATRIAL SEPTAL DEFECT [None]
  - BODY TEMPERATURE INCREASED [None]
  - CARDIAC MURMUR [None]
  - CARDIOMEGALY [None]
  - CONGENITAL AORTIC ATRESIA [None]
  - CONGENITAL HYDRONEPHROSIS [None]
  - CYANOSIS [None]
  - DEVELOPMENTAL DELAY [None]
  - DILATATION VENTRICULAR [None]
  - DRUG EXPOSURE DURING PREGNANCY [None]
  - DYSMORPHISM [None]
  - HYDRONEPHROSIS [None]
  - HYDROPS FOETALIS [None]
  - HYPOPLASTIC LEFT HEART SYNDROME [None]
  - HYPOTONIA [None]
  - OEDEMA [None]
  - PATENT DUCTUS ARTERIOSUS [None]
  - PERIORBITAL OEDEMA [None]
  - POST PROCEDURAL HAEMORRHAGE [None]
  - PULMONARY ARTERIOVENOUS FISTULA [None]
  - PULMONARY OEDEMA [None]
  - PYELECTASIA [None]
  - RENAL DISORDER [None]
  - RESPIRATORY FAILURE [None]
  - SEPSIS [None]
  - STRABISMUS [None]
  - TALIPES [None]
  - TRICUSPID VALVE INCOMPETENCE [None]
  - VENTRICULAR HYPOPLASIA [None]
  - VESICOURETERIC REFLUX [None]
  - WEIGHT GAIN POOR [None]
